FAERS Safety Report 5181013-1 (Version None)
Quarter: 2006Q4

REPORT INFORMATION
  Report Type: 
  Country: None (occurrence: None)
  Receive Date: 20061220
  Receipt Date: 20060216
  Transmission Date: 20070319
  Serious: Yes (Hospitalization)
  Sender: FDA-Public Use
  Company Number: DE-BAYER-200610223BVD

PATIENT
  Age: 65 Year
  Sex: Male
  Weight: 110 kg

DRUGS (5)
  1. SORAFENIB [Suspect]
     Indication: HEPATIC NEOPLASM MALIGNANT
     Dosage: UNIT DOSE: 400 MG
     Route: 048
     Dates: start: 20051124, end: 20051205
  2. SORAFENIB [Suspect]
     Dosage: UNIT DOSE: 400 MG
     Route: 048
     Dates: start: 20051201
  3. NOVORAPID [Concomitant]
     Route: 058
     Dates: start: 20050101
  4. NOVODIGAL [Concomitant]
     Route: 048
     Dates: start: 20050101
  5. CAPTOHEXAL [Concomitant]
     Route: 048
     Dates: start: 20050101

REACTIONS (1)
  - HEPATIC ENCEPHALOPATHY [None]
